FAERS Safety Report 14375970 (Version 2)
Quarter: 2018Q3

REPORT INFORMATION
  Report Type: Spontaneous
  Country: US (occurrence: US)
  Receive Date: 20180111
  Receipt Date: 20180706
  Transmission Date: 20181010
  Serious: Yes (Hospitalization, Other)
  Sender: FDA-Public Use
  Company Number: US-DSJP-DSU-2017-137989

PATIENT

DRUGS (4)
  1. BENICAR [Suspect]
     Active Substance: OLMESARTAN MEDOXOMIL
     Indication: HYPERTENSION
     Dosage: 40 MG, UNK
     Dates: start: 20100721
  2. BENICAR HCT [Suspect]
     Active Substance: HYDROCHLOROTHIAZIDE\OLMESARTAN MEDOXOMIL
     Dosage: 40?12.5 MG, UNK
     Route: 048
     Dates: start: 20100721
  3. BENICAR HCT [Suspect]
     Active Substance: HYDROCHLOROTHIAZIDE\OLMESARTAN MEDOXOMIL
     Indication: HYPERTENSION
     Dosage: 20?12.5 MG, QD
     Route: 048
     Dates: start: 20100721
  4. BENICAR HCT [Suspect]
     Active Substance: HYDROCHLOROTHIAZIDE\OLMESARTAN MEDOXOMIL
     Dosage: 40?25 MG, UNK
     Route: 048
     Dates: start: 20100721

REACTIONS (10)
  - Renal cyst [Unknown]
  - Hyperglycaemia [Unknown]
  - Hepatitis C [Unknown]
  - Cholelithiasis [Recovered/Resolved]
  - Viral infection [Recovered/Resolved]
  - Chest pain [Recovered/Resolved]
  - Diverticulum intestinal [Unknown]
  - Upper respiratory tract infection [Recovered/Resolved]
  - Pancreatitis acute [Unknown]
  - Sprue-like enteropathy [Not Recovered/Not Resolved]

NARRATIVE: CASE EVENT DATE: 20130607
